FAERS Safety Report 16805294 (Version 1)
Quarter: 2019Q3

REPORT INFORMATION
  Report Type: Spontaneous
  Country: US (occurrence: US)
  Receive Date: 20190913
  Receipt Date: 20190913
  Transmission Date: 20191005
  Serious: Yes (Hospitalization, Other)
  Sender: FDA-Public Use
  Company Number: US-AUROBINDO-AUR-APL-2019-058101

PATIENT

DRUGS (7)
  1. FENTANYL. [Suspect]
     Active Substance: FENTANYL
     Indication: PROCEDURAL PAIN
     Dosage: 1 MICROGRAM/KILOGRAM, AS NECESSARY
     Route: 040
  2. HYDROMORPHONE [Suspect]
     Active Substance: HYDROMORPHONE
     Dosage: UNK, AS NECESSARY (POD 2?40, 0.35 MG/DOSE PRN)
     Route: 065
  3. MORPHINE [Suspect]
     Active Substance: MORPHINE
     Indication: PROCEDURAL PAIN
     Dosage: 2 MILLIGRAM, AS NECESSARY
     Route: 065
  4. DEXMEDETOMIDINE. [Concomitant]
     Active Substance: DEXMEDETOMIDINE
     Indication: SEDATION
     Dosage: 1.5 MICROGRAM/KILOGRAM
     Route: 065
  5. HYDROMORPHONE [Suspect]
     Active Substance: HYDROMORPHONE
     Indication: POSTOPERATIVE ANALGESIA
     Dosage: 0.3 MILLIGRAM (POD 2?40, MAX DOSE 0.3 MG BASAL)
     Route: 065
  6. METHADONE [Suspect]
     Active Substance: METHADONE HYDROCHLORIDE
     Indication: PROCEDURAL PAIN
     Dosage: 4 MILLIGRAM, TWO TIMES A DAY
     Route: 042
  7. FENTANYL. [Suspect]
     Active Substance: FENTANYL
     Dosage: 4 MICROGRAM/KILOGRAM, MAX DOSE 4 MCG/KG/H, POD 0?2
     Route: 042

REACTIONS (2)
  - Postoperative ileus [Recovered/Resolved]
  - Abdominal compartment syndrome [Recovered/Resolved]
